FAERS Safety Report 20884409 (Version 1)
Quarter: 2022Q2

REPORT INFORMATION
  Report Type: Spontaneous
  Country: CN (occurrence: CN)
  Receive Date: 20220527
  Receipt Date: 20220527
  Transmission Date: 20220721
  Serious: Yes (Other)
  Sender: FDA-Public Use
  Company Number: CN-PFIZER INC-202200757016

PATIENT
  Age: 59 Year
  Sex: Male
  Weight: 77 kg

DRUGS (12)
  1. IRINOTECAN [Suspect]
     Active Substance: IRINOTECAN
     Indication: Haemangioma of liver
     Dosage: 0.28 G, 1X/DAY
     Route: 041
     Dates: start: 20220110, end: 20220110
  2. IRINOTECAN [Suspect]
     Active Substance: IRINOTECAN
     Indication: Hypothyroidism
  3. IRINOTECAN [Suspect]
     Active Substance: IRINOTECAN
     Indication: Drug-induced liver injury
  4. IRINOTECAN [Suspect]
     Active Substance: IRINOTECAN
     Indication: Pancreatic carcinoma
  5. ELOXATIN [Suspect]
     Active Substance: OXALIPLATIN
     Indication: Haemangioma of liver
     Dosage: 150 MG, 1X/DAY
     Route: 041
     Dates: start: 20220110, end: 20220110
  6. ELOXATIN [Suspect]
     Active Substance: OXALIPLATIN
     Indication: Hypothyroidism
  7. ELOXATIN [Suspect]
     Active Substance: OXALIPLATIN
     Indication: Drug-induced liver injury
  8. ELOXATIN [Suspect]
     Active Substance: OXALIPLATIN
     Indication: Pancreatic carcinoma
  9. FLUOROURACIL [Suspect]
     Active Substance: FLUOROURACIL
     Indication: Haemangioma of liver
     Dosage: 4.6 G, 1X/DAY
     Dates: start: 20220110, end: 20220110
  10. FLUOROURACIL [Suspect]
     Active Substance: FLUOROURACIL
     Indication: Hypothyroidism
  11. FLUOROURACIL [Suspect]
     Active Substance: FLUOROURACIL
     Indication: Drug-induced liver injury
  12. FLUOROURACIL [Suspect]
     Active Substance: FLUOROURACIL
     Indication: Pancreatic carcinoma

REACTIONS (2)
  - Drug-induced liver injury [Recovering/Resolving]
  - Hepatic function abnormal [Recovering/Resolving]

NARRATIVE: CASE EVENT DATE: 20220110
